FAERS Safety Report 7995241-0 (Version None)
Quarter: 2011Q4

REPORT INFORMATION
  Report Type: 
  Country: None (occurrence: None)
  Receive Date: 20111220
  Receipt Date: 20111220
  Transmission Date: 20120403
  Serious: Yes (Other)
  Sender: FDA-Public Use
  Company Number: None

PATIENT
  Age: 22 Year
  Sex: Female

DRUGS (5)
  1. LORTAB [Concomitant]
     Route: 048
  2. ATIVAN [Concomitant]
     Route: 048
  3. ULTRAVIST 150 [Suspect]
     Indication: PULMONARY EMBOLISM
     Dosage: 100 ML
     Route: 042
     Dates: start: 20111115, end: 20111115
  4. ULTRAVIST 150 [Suspect]
     Indication: COMPUTERISED TOMOGRAM THORAX
     Dosage: 100 ML
     Route: 042
     Dates: start: 20111115, end: 20111115
  5. ATIVAN [Concomitant]
     Route: 042

REACTIONS (2)
  - RASH [None]
  - DYSPNOEA [None]
